FAERS Safety Report 6291686-8 (Version None)
Quarter: 2009Q3

REPORT INFORMATION
  Report Type: 
  Country: None (occurrence: None)
  Receive Date: 20090730
  Receipt Date: 20090722
  Transmission Date: 20100115
  Serious: Yes (Hospitalization)
  Sender: FDA-Public Use
  Company Number: JP-ASTRAZENECA-2009SE04372

PATIENT
  Age: 72 Year
  Sex: Female

DRUGS (10)
  1. MEROPEN [Suspect]
     Indication: SEPSIS
     Route: 042
     Dates: start: 20090530, end: 20090601
  2. VFEND [Suspect]
     Indication: BRONCHOPULMONARY ASPERGILLOSIS
     Route: 048
     Dates: start: 20090609, end: 20090615
  3. CIPROXAN [Suspect]
     Indication: SEPSIS
     Route: 065
     Dates: start: 20090601, end: 20090611
  4. AMBISOME [Suspect]
     Indication: BRONCHOPULMONARY ASPERGILLOSIS
     Route: 065
     Dates: start: 20090606, end: 20090615
  5. CRAVIT [Suspect]
     Indication: BRONCHITIS
     Route: 048
     Dates: start: 20090611, end: 20090615
  6. MYSLEE [Suspect]
     Indication: INSOMNIA
     Route: 048
     Dates: end: 20090615
  7. TAKEPRON [Suspect]
     Indication: REFLUX OESOPHAGITIS
     Route: 048
     Dates: end: 20090615
  8. MEDICON [Suspect]
     Indication: BRONCHITIS
     Route: 048
     Dates: start: 20090606, end: 20090615
  9. URSO 250 [Suspect]
     Indication: LIVER DISORDER
     Route: 048
     Dates: start: 20090608, end: 20090615
  10. ADALAT [Suspect]
     Indication: HYPERTENSION
     Route: 048
     Dates: start: 20090613, end: 20090615

REACTIONS (1)
  - DRUG ERUPTION [None]
